FAERS Safety Report 14020799 (Version 4)
Quarter: 2017Q4

REPORT INFORMATION
  Report Type: Spontaneous
  Country: DE (occurrence: DE)
  Receive Date: 20170928
  Receipt Date: 20171208
  Transmission Date: 20180321
  Serious: Yes (Other)
  Sender: FDA-Public Use
  Company Number: DE-NOVOPROD-564961

PATIENT
  Age: 12 Year
  Sex: Male
  Weight: 42.2 kg

DRUGS (2)
  1. NOVORAPID [Suspect]
     Active Substance: INSULIN ASPART
     Dosage: 26.03 IE, QD
     Route: 058
  2. NOVORAPID [Suspect]
     Active Substance: INSULIN ASPART
     Indication: TYPE 1 DIABETES MELLITUS
     Dosage: 26.03 IE, QD
     Route: 058
     Dates: start: 20151011

REACTIONS (4)
  - Diabetic ketoacidosis [Recovered/Resolved]
  - Liquid product physical issue [Unknown]
  - Product leakage [Unknown]
  - Product container issue [Unknown]

NARRATIVE: CASE EVENT DATE: 20170921
